FAERS Safety Report 16951391 (Version 1)
Quarter: 2019Q4

REPORT INFORMATION
  Report Type: Spontaneous
  Country: US (occurrence: US)
  Receive Date: 20190903
  Receipt Date: 20190903
  Transmission Date: 20200122
  Serious: Yes (Other)
  Sender: FDA-Public Use
  Company Number: None

PATIENT

DRUGS (2)
  1. LIQUID HERBAL NITRO FUEL FOR PASSION, MALE ENHANCEMENT SHOOTER [Suspect]
     Active Substance: DIETARY SUPPLEMENT\HERBALS
     Dosage: ?          OTHER DOSE:3 OZ;?
  2. SILDENAFIL. [Suspect]
     Active Substance: SILDENAFIL

REACTIONS (2)
  - Product formulation issue [None]
  - Priapism [None]
